FAERS Safety Report 14972628 (Version 2)
Quarter: 2018Q2

REPORT INFORMATION
  Report Type: Spontaneous
  Country: US (occurrence: US)
  Receive Date: 20180605
  Receipt Date: 20180607
  Transmission Date: 20180711
  Serious: Yes (Disabling, Other)
  Sender: FDA-Public Use
  Company Number: US-PFIZER INC-2018224755

PATIENT
  Age: 78 Year
  Sex: Female

DRUGS (1)
  1. DILANTIN [Suspect]
     Active Substance: PHENYTOIN
     Indication: ANEURYSM
     Dosage: UNK
     Dates: start: 1976

REACTIONS (1)
  - Cerebellar atrophy [Unknown]
